FAERS Safety Report 6985144-2 (Version None)
Quarter: 2010Q3

REPORT INFORMATION
  Report Type: 
  Country: None (occurrence: None)
  Receive Date: 20100915
  Receipt Date: 20100907
  Transmission Date: 20110219
  Serious: Yes (Hospitalization, Other)
  Sender: FDA-Public Use
  Company Number: JP-ROCHE-704407

PATIENT
  Sex: Male
  Weight: 85 kg

DRUGS (7)
  1. AVASTIN [Suspect]
     Indication: LUNG ADENOCARCINOMA
     Route: 041
     Dates: start: 20100426, end: 20100426
  2. CARBOPLATIN [Concomitant]
     Route: 041
     Dates: start: 20100426, end: 20100426
  3. PACLITAXEL [Concomitant]
     Dosage: DOSAGE IS UNCERTAIN
     Route: 041
     Dates: start: 20100426, end: 20100426
  4. ZANTAC [Concomitant]
     Route: 041
     Dates: start: 20100426, end: 20100426
  5. DECADRON [Concomitant]
     Route: 041
     Dates: start: 20100426, end: 20100426
  6. RESTAMIN [Concomitant]
     Route: 048
     Dates: start: 20100426, end: 20100426
  7. ZOFRAN [Concomitant]
     Route: 041
     Dates: start: 20100426, end: 20100426

REACTIONS (5)
  - ABDOMINAL DISCOMFORT [None]
  - ENTEROCOLITIS [None]
  - FEELING ABNORMAL [None]
  - GASTROINTESTINAL PERFORATION [None]
  - PERITONITIS [None]
